FAERS Safety Report 6499919-X (Version None)
Quarter: 2009Q4

REPORT INFORMATION
  Report Type: 
  Country: None (occurrence: None)
  Receive Date: 20091214
  Receipt Date: 20091214
  Transmission Date: 20100525
  Serious: No
  Sender: FDA-Public Use
  Company Number: None

PATIENT
  Age: 73 Year
  Sex: Male
  Weight: 81.6475 kg

DRUGS (1)
  1. CARBIDOPA + LEVODOPA [Suspect]
     Indication: PARKINSON'S DISEASE
     Dosage: 360  4 TIMES A DAY
     Dates: start: 20091116, end: 20091121

REACTIONS (2)
  - PRODUCT SUBSTITUTION ISSUE [None]
  - SENSATION OF HEAVINESS [None]
